FAERS Safety Report 9012957 (Version 1)
Quarter: 2013Q1

REPORT INFORMATION
  Report Type: Spontaneous
  Country: FR (occurrence: FR)
  Receive Date: 20130114
  Receipt Date: 20130114
  Transmission Date: 20140127
  Serious: Yes (Hospitalization)
  Sender: FDA-Public Use
  Company Number: FR-GLAXOSMITHKLINE-B0856521A

PATIENT
  Age: 34 Year
  Sex: Female
  Weight: 81 kg

DRUGS (8)
  1. ZELITREX [Suspect]
     Indication: HERPES ZOSTER
     Dosage: 500MG TWICE PER DAY
     Route: 048
     Dates: start: 20120611, end: 20121107
  2. ZOVIRAX [Suspect]
     Indication: HERPES ZOSTER
     Route: 042
     Dates: start: 20120615, end: 20121113
  3. BACTRIM [Suspect]
     Indication: OPPORTUNISTIC INFECTION PROPHYLAXIS
     Dosage: 400MG PER DAY
     Route: 048
     Dates: start: 20120629, end: 20121031
  4. CELLCEPT [Suspect]
     Indication: GLOMERULONEPHRITIS
     Route: 048
     Dates: end: 20121107
  5. CORTANCYL [Concomitant]
     Indication: GLOMERULONEPHRITIS
  6. PLAQUENIL [Concomitant]
     Indication: GLOMERULONEPHRITIS
     Dates: end: 20121107
  7. COZAAR [Concomitant]
     Dates: end: 20121107
  8. UVEDOSE [Concomitant]

REACTIONS (9)
  - Agranulocytosis [Recovered/Resolved]
  - Cellulitis [Recovered/Resolved]
  - Asthenia [Unknown]
  - Chills [Unknown]
  - Pain [Unknown]
  - Oedema [Unknown]
  - Nausea [Unknown]
  - Vomiting [Unknown]
  - Mucosal inflammation [Unknown]
